FAERS Safety Report 5557286-X (Version None)
Quarter: 2007Q4

REPORT INFORMATION
  Report Type: 
  Country: None (occurrence: None)
  Receive Date: 20071214
  Receipt Date: 20071130
  Transmission Date: 20080405
  Serious: Yes (Hospitalization)
  Sender: FDA-Public Use
  Company Number: GB-ELI_LILLY_AND_COMPANY-GB200711004216

PATIENT
  Sex: Female
  Weight: 74 kg

DRUGS (8)
  1. GEMCITABINE HCL [Suspect]
     Dates: start: 20071121
  2. FENTANYL [Concomitant]
  3. HALOPERIDOL [Concomitant]
  4. OXYNORM [Concomitant]
  5. DEXAMETHASONE TAB [Concomitant]
  6. CREON [Concomitant]
  7. PROCHLORPERAZINE MALEATE [Concomitant]
     Dates: start: 20071106
  8. ONDANSETRON [Concomitant]
     Dates: start: 20071113

REACTIONS (3)
  - ABDOMINAL PAIN [None]
  - BILIARY DILATATION [None]
  - PYREXIA [None]
